FAERS Safety Report 6208300-X (Version None)
Quarter: 2009Q2

REPORT INFORMATION
  Report Type: 
  Country: None (occurrence: None)
  Receive Date: 20090529
  Receipt Date: 20090521
  Transmission Date: 20091009
  Serious: Yes (Other)
  Sender: FDA-Public Use
  Company Number: US-PFIZER INC-2005132121

PATIENT
  Sex: Female
  Weight: 81 kg

DRUGS (8)
  1. PROVERA [Suspect]
     Indication: HORMONE REPLACEMENT THERAPY
     Route: 048
     Dates: start: 19900101, end: 20040101
  2. MEDROXYPROGESTERONE AND MEDROXYPROGESTERONE ACETATE [Suspect]
     Indication: HORMONE REPLACEMENT THERAPY
     Dosage: UNK
     Route: 048
     Dates: start: 19950101, end: 20030101
  3. PREMARIN [Suspect]
     Indication: HORMONE REPLACEMENT THERAPY
     Dosage: UNK
     Dates: start: 19950101, end: 20030101
  4. PREMPRO [Suspect]
     Indication: HORMONE REPLACEMENT THERAPY
     Dates: start: 19900101, end: 20040101
  5. FOSAMAX [Concomitant]
     Indication: OSTEOPOROSIS
     Dosage: UNK
     Dates: start: 19950101
  6. PROTONIX [Concomitant]
     Indication: REFLUX GASTRITIS
     Dosage: UNK
     Dates: start: 19950101
  7. ALLEGRA [Concomitant]
     Indication: HYPERSENSITIVITY
     Dosage: UNK
     Dates: start: 20020101
  8. OXYBUTYNIN [Concomitant]
     Indication: INCONTINENCE
     Dosage: UNK
     Dates: start: 20000101

REACTIONS (1)
  - BREAST CANCER [None]
